FAERS Safety Report 8142337-9 (Version None)
Quarter: 2012Q1

REPORT INFORMATION
  Report Type: 
  Country: None (occurrence: None)
  Receive Date: 20120216
  Receipt Date: 20120126
  Transmission Date: 20120608
  Serious: Yes (Other)
  Sender: FDA-Public Use
  Company Number: CHPA2012US002149

PATIENT
  Age: 47 Year
  Sex: Male

DRUGS (4)
  1. METHADONE HCL [Concomitant]
     Dosage: 40 MG, TID
  2. EXCEDRIN EXTRA STRENGTH TABLETS [Suspect]
     Indication: MIGRAINE
     Dosage: 4-8 DF, QD
     Route: 048
     Dates: end: 20120101
  3. INSULIN [Concomitant]
     Indication: DIABETES MELLITUS
     Dosage: 5 DF, QD
  4. OXYCODONE HCL [Concomitant]
     Dosage: 30 MG, QID

REACTIONS (5)
  - DRUG INEFFECTIVE [None]
  - LOWER LIMB FRACTURE [None]
  - VOMITING [None]
  - INCORRECT DRUG ADMINISTRATION DURATION [None]
  - NAUSEA [None]
